FAERS Safety Report 22260777 (Version 1)
Quarter: 2023Q2

REPORT INFORMATION
  Report Type: Spontaneous
  Country: JP (occurrence: JP)
  Receive Date: 20230427
  Receipt Date: 20230427
  Transmission Date: 20230721
  Serious: Yes (Other)
  Sender: FDA-Public Use
  Company Number: JP-PFIZER INC-202300168323

PATIENT

DRUGS (1)
  1. TYGACIL [Suspect]
     Active Substance: TIGECYCLINE
     Dosage: ABOUT 3 WEEKS

REACTIONS (3)
  - Liver disorder [Unknown]
  - Platelet count decreased [Unknown]
  - Blood bilirubin increased [Recovering/Resolving]
